FAERS Safety Report 6909626-4 (Version None)
Quarter: 2010Q3

REPORT INFORMATION
  Report Type: 
  Country: None (occurrence: None)
  Receive Date: 20100805
  Receipt Date: 20100728
  Transmission Date: 20110219
  Serious: Yes (Disabling)
  Sender: FDA-Public Use
  Company Number: JP-MERCK-1008USA00055

PATIENT
  Age: 50 Year
  Sex: Male

DRUGS (4)
  1. PEPCID [Suspect]
     Route: 042
     Dates: start: 20100301
  2. UNASYN [Concomitant]
     Route: 065
  3. DIPRIVAN [Concomitant]
     Route: 065
  4. NITROUS OXIDE [Concomitant]
     Route: 065

REACTIONS (1)
  - RHABDOMYOLYSIS [None]
